FAERS Safety Report 9500825 (Version 3)
Quarter: 2014Q1

REPORT INFORMATION
  Report Type: Spontaneous
  Country: TW (occurrence: TW)
  Receive Date: 20130905
  Receipt Date: 20140115
  Transmission Date: 20141002
  Serious: Yes (Death, Hospitalization)
  Sender: FDA-Public Use
  Company Number: TW-PFIZER INC-2013251291

PATIENT
  Age: 70 Year
  Sex: Male

DRUGS (1)
  1. SUTENT [Suspect]
     Indication: RENAL CELL CARCINOMA
     Dosage: 37.5 MG, ONCE DAILY, TWO WEEK ON AND ONE WEEK OFF
     Route: 048
     Dates: start: 20130206

REACTIONS (3)
  - Death [Fatal]
  - Lung infection [Recovered/Resolved]
  - Pleural effusion [Not Recovered/Not Resolved]
